FAERS Safety Report 8025805-X (Version None)
Quarter: 2012Q1

REPORT INFORMATION
  Report Type: 
  Country: None (occurrence: None)
  Receive Date: 20120105
  Receipt Date: 20110822
  Transmission Date: 20120608
  Serious: No
  Sender: FDA-Public Use
  Company Number: US-ABBOTT-11P-163-0848643-00

PATIENT
  Age: 47 Year
  Sex: Male
  Weight: 77.18 kg

DRUGS (3)
  1. SYNTHROID [Suspect]
     Indication: HYPOTHYROIDISM
     Dates: start: 20110610
  2. SYNTHROID [Suspect]
     Indication: BLOOD THYROID STIMULATING HORMONE
  3. TESTIM [Suspect]
     Indication: BLOOD TESTOSTERONE DECREASED
     Dosage: TESTIM 1%, 50MG GEL, ONCE DAILY
     Route: 062
     Dates: start: 20110601

REACTIONS (1)
  - BLOOD TESTOSTERONE DECREASED [None]
